FAERS Safety Report 16648712 (Version 1)
Quarter: 2019Q3

REPORT INFORMATION
  Report Type: Spontaneous
  Country: DE (occurrence: DE)
  Receive Date: 20190730
  Receipt Date: 20190730
  Transmission Date: 20191004
  Serious: Yes (Other)
  Sender: FDA-Public Use
  Company Number: DE-ALLERGAN-1930264US

PATIENT
  Age: 53 Year
  Sex: Female

DRUGS (1)
  1. URSODEOXYCHOLIC ACID UNK [Suspect]
     Active Substance: URSODIOL
     Indication: CHOLANGITIS SCLEROSING
     Dosage: 12MG/KG BW
     Route: 065

REACTIONS (11)
  - Fatigue [Unknown]
  - Pruritus [Unknown]
  - Colitis [Unknown]
  - Upper gastrointestinal haemorrhage [Unknown]
  - Ascites [Unknown]
  - Weight decreased [Unknown]
  - Adenocarcinoma of colon [Unknown]
  - Oedema peripheral [Unknown]
  - Hepatic cirrhosis [Unknown]
  - Gastrointestinal inflammation [Unknown]
  - Diarrhoea [Recovering/Resolving]
